FAERS Safety Report 4464277-9 (Version None)
Quarter: 2004Q4

REPORT INFORMATION
  Report Type: 
  Country: None (occurrence: None)
  Receive Date: 20041001
  Receipt Date: 20030224
  Transmission Date: 20050328
  Serious: Yes (Other)
  Sender: FDA-Public Use
  Company Number: PHEH2003US01734

PATIENT
  Age: 3 Week
  Sex: Male

DRUGS (3)
  1. NEORAL [Suspect]
     Indication: HEART TRANSPLANT
     Dosage: 6 MG, TID
     Route: 048
     Dates: start: 20030221, end: 20030223
  2. NEORAL [Suspect]
     Dosage: 60 MG, Q8H (2 DOSES GIVEN)
     Route: 048
     Dates: start: 20030222, end: 20030224
  3. NEORAL [Suspect]
     Dosage: 6 MG, TID
     Route: 048
     Dates: start: 20030224

REACTIONS (4)
  - ACCIDENTAL OVERDOSE [None]
  - CRYING [None]
  - IMMUNOSUPPRESSANT DRUG LEVEL INCREASED [None]
  - IRRITABILITY [None]
